FAERS Safety Report 10269843 (Version 1)
Quarter: 2014Q2

REPORT INFORMATION
  Report Type: Spontaneous
  Country: US (occurrence: None)
  Receive Date: 20140627
  Receipt Date: 20140627
  Transmission Date: 20141212
  Serious: Yes (Other)
  Sender: FDA-Public Use
  Company Number: None

PATIENT
  Age: 34 Year
  Sex: Female
  Weight: 142.88 kg

DRUGS (1)
  1. HEPARIN [Suspect]
     Indication: DEEP VEIN THROMBOSIS
     Dosage: CONSTANT DRIP INTO A VEIN
     Route: 042
     Dates: start: 20140525, end: 20140601

REACTIONS (2)
  - Oral pain [None]
  - No therapeutic response [None]
